FAERS Safety Report 21344013 (Version 1)
Quarter: 2022Q3

REPORT INFORMATION
  Report Type: Spontaneous
  Country: US (occurrence: US)
  Receive Date: 20220916
  Receipt Date: 20220916
  Transmission Date: 20221027
  Serious: Yes (Other)
  Sender: FDA-Public Use
  Company Number: US-SA-SAC20220915000131

PATIENT

DRUGS (4)
  1. ZANTAC [Suspect]
     Active Substance: RANITIDINE HYDROCHLORIDE
     Dosage: OVER THE COUNTER ZANTAC FROM APPROXIMATELY 1998 TO 2011
     Route: 048
     Dates: start: 1998, end: 2011
  2. ZANTAC [Suspect]
     Active Substance: RANITIDINE HYDROCHLORIDE
     Dosage: PRESCRIPTION ZANTAC FROM APPROXIMATELY 1998 TO 2011
     Route: 048
     Dates: start: 1998, end: 2011
  3. RANITIDINE HYDROCHLORIDE [Suspect]
     Active Substance: RANITIDINE HYDROCHLORIDE
     Dosage: OVER THE COUNTER RANITIDINE FROM APPROXIMATELY 1998 TO 2011
     Route: 048
     Dates: start: 1998, end: 2011
  4. RANITIDINE HYDROCHLORIDE [Suspect]
     Active Substance: RANITIDINE HYDROCHLORIDE
     Dosage: PRESCRIPTION RANITIDINE FROM APPROXIMATELY 1998 TO 2011
     Route: 048
     Dates: start: 1998, end: 2011

REACTIONS (1)
  - Colorectal cancer [Unknown]
